FAERS Safety Report 15374531 (Version 2)
Quarter: 2018Q3

REPORT INFORMATION
  Report Type: Spontaneous
  Country: SE (occurrence: SE)
  Receive Date: 20180912
  Receipt Date: 20180919
  Transmission Date: 20181010
  Serious: Yes (Death, Other)
  Sender: FDA-Public Use
  Company Number: SE-PFIZER INC-2018365036

PATIENT

DRUGS (2)
  1. NORTRIPTYLINE [Interacting]
     Active Substance: NORTRIPTYLINE
     Indication: ANTIDEPRESSANT THERAPY
     Dosage: UNK
  2. FLUCONAZOLE. [Suspect]
     Active Substance: FLUCONAZOLE
     Indication: ORAL FUNGAL INFECTION
     Dosage: UNK (DOUBLE DOSE)

REACTIONS (4)
  - Incorrect dose administered [Unknown]
  - Labelled drug-drug interaction medication error [Unknown]
  - Toxicity to various agents [Fatal]
  - Cardiac arrest [Fatal]
